FAERS Safety Report 15584626 (Version 1)
Quarter: 2018Q4

REPORT INFORMATION
  Report Type: Spontaneous
  Country: TW (occurrence: TW)
  Receive Date: 20181105
  Receipt Date: 20181105
  Transmission Date: 20190205
  Serious: Yes (Death, Hospitalization, Other)
  Sender: FDA-Public Use
  Company Number: TW-ACCORD-090559

PATIENT
  Age: 41 Year
  Sex: Male

DRUGS (4)
  1. LITHIUM. [Suspect]
     Active Substance: LITHIUM
     Indication: SCHIZOAFFECTIVE DISORDER
     Dosage: 900 MG DAILY
  2. LORAZEPAM. [Suspect]
     Active Substance: LORAZEPAM
     Indication: SCHIZOAFFECTIVE DISORDER
     Dosage: 2 MG 1 AMPULE
     Route: 030
  3. CLOZAPINE. [Suspect]
     Active Substance: CLOZAPINE
     Indication: SCHIZOAFFECTIVE DISORDER
     Dosage: TITRATED UP TO 175 MG/D, ?LATER AT A DOSE OF 50 MG/DAY TITRATED TO 150 MG
  4. HALOPERIDOL. [Suspect]
     Active Substance: HALOPERIDOL
     Indication: SCHIZOAFFECTIVE DISORDER
     Dosage: 5 MG 1 AMPULE,A TOTAL OF SIX DOSES IN THE FIRST WEEK
     Route: 030

REACTIONS (4)
  - Pulmonary embolism [Fatal]
  - Cardiac arrest [Unknown]
  - Myocardial infarction [Unknown]
  - Catatonia [Unknown]
